FAERS Safety Report 11632857 (Version 1)
Quarter: 2015Q4

REPORT INFORMATION
  Report Type: Spontaneous
  Country: US (occurrence: None)
  Receive Date: 20151014
  Receipt Date: 20151014
  Transmission Date: 20160304
  Serious: No
  Sender: FDA-Public Use
  Company Number: None

PATIENT
  Age: 72 Year
  Sex: Male
  Weight: 95.26 kg

DRUGS (3)
  1. ULTRASTRENGTH MUSCLE RUB SPRAY CVS [Suspect]
     Active Substance: CAMPHOR (SYNTHETIC)\MENTHOL\MENTHYL SALICYLATE
     Indication: MYALGIA
     Dosage: NO MORE THAN 3-4 TIMES DAILY ON THE SKIN
     Dates: start: 20150524, end: 20150524
  2. VITAMIN D [Concomitant]
     Active Substance: CHOLECALCIFEROL
  3. BAYER [Concomitant]
     Active Substance: ASPIRIN

REACTIONS (3)
  - Skin disorder [None]
  - Application site pain [None]
  - Product quality issue [None]

NARRATIVE: CASE EVENT DATE: 20150524
